FAERS Safety Report 17346919 (Version 2)
Quarter: 2020Q3

REPORT INFORMATION
  Report Type: Spontaneous
  Country: FI (occurrence: FI)
  Receive Date: 20200130
  Receipt Date: 20200930
  Transmission Date: 20201102
  Serious: Yes (Death, Other)
  Sender: FDA-Public Use
  Company Number: FI-SUN PHARMACEUTICAL INDUSTRIES LTD-2020RR-235048

PATIENT
  Age: 31 Year
  Sex: Female

DRUGS (10)
  1. CITALOPRAM [Suspect]
     Active Substance: CITALOPRAM HYDROBROMIDE
     Indication: PRODUCT USED FOR UNKNOWN INDICATION
     Dosage: ()
     Route: 065
  2. CAFFEINE. [Suspect]
     Active Substance: CAFFEINE
     Dosage: ()
     Route: 065
  3. CAFFEINE. [Suspect]
     Active Substance: CAFFEINE
     Dosage: ()
     Route: 065
  4. METHADONE [Interacting]
     Active Substance: METHADONE HYDROCHLORIDE
     Indication: PRODUCT USED FOR UNKNOWN INDICATION
     Dosage: ()
     Route: 065
  5. OXAZEPAM. [Suspect]
     Active Substance: OXAZEPAM
     Indication: PRODUCT USED FOR UNKNOWN INDICATION
     Dosage: ()
     Route: 065
  6. CITALOPRAM [Interacting]
     Active Substance: CITALOPRAM HYDROBROMIDE
     Dosage: UNK
     Route: 065
  7. METHADONE [Interacting]
     Active Substance: METHADONE HYDROCHLORIDE
     Dosage: ()
     Route: 065
  8. CAFFEINE. [Suspect]
     Active Substance: CAFFEINE
     Indication: PRODUCT USED FOR UNKNOWN INDICATION
     Dosage: ()
     Route: 065
  9. OXAZEPAM. [Suspect]
     Active Substance: OXAZEPAM
     Indication: PRODUCT USED FOR UNKNOWN INDICATION
     Dosage: ()
     Route: 065
  10. METHADONE [Interacting]
     Active Substance: METHADONE HYDROCHLORIDE
     Indication: PRODUCT USED FOR UNKNOWN INDICATION
     Dosage: ()
     Route: 065

REACTIONS (6)
  - Off label use [Fatal]
  - Completed suicide [Fatal]
  - Electrocardiogram QT prolonged [Fatal]
  - Drug ineffective [Fatal]
  - Drug interaction [Fatal]
  - Toxicity to various agents [Fatal]
